FAERS Safety Report 7487841-1 (Version None)
Quarter: 2011Q2

REPORT INFORMATION
  Report Type: 
  Country: None (occurrence: None)
  Receive Date: 20110511
  Receipt Date: 20110428
  Transmission Date: 20111010
  Serious: Yes (Life-Threatening, Other)
  Sender: FDA-Public Use
  Company Number: 815851

PATIENT
  Age: 79 Year
  Sex: Female
  Weight: 72 kg

DRUGS (5)
  1. METHOTREXATE [Suspect]
     Indication: RHEUMATOID ARTHRITIS
     Dosage: 5 MG MILLIGRAM(S), ORAL
     Route: 048
  2. ASPIRIN [Concomitant]
  3. (ABATACEPT) [Suspect]
     Indication: PRODUCT USED FOR UNKNOWN INDICATION
     Dosage: INTRAVENOUS (NOT OTHERWISE SPECIFIED)
     Route: 042
     Dates: start: 20050101
  4. METOPROLOL TARTRATE [Concomitant]
  5. (ADCAL /00056901/) [Concomitant]

REACTIONS (1)
  - LUNG ADENOCARCINOMA METASTATIC [None]
